FAERS Safety Report 8297164-9 (Version None)
Quarter: 2012Q2

REPORT INFORMATION
  Report Type: 
  Country: None (occurrence: None)
  Receive Date: 20120419
  Receipt Date: 20120416
  Transmission Date: 20120825
  Serious: No
  Sender: FDA-Public Use
  Company Number: US-PFIZER INC-2012086257

PATIENT
  Sex: Male

DRUGS (5)
  1. CELEBREX [Suspect]
     Dosage: UNK
  2. GEODON [Suspect]
     Dosage: UNK
  3. GLUCOTROL [Suspect]
     Dosage: UNK
  4. ZOLOFT [Suspect]
     Dosage: UNK
  5. VISTARIL [Suspect]
     Dosage: UNK

REACTIONS (4)
  - HYPERTENSION [None]
  - LIMB DISCOMFORT [None]
  - GAIT DISTURBANCE [None]
  - MEMORY IMPAIRMENT [None]
